FAERS Safety Report 5151363-3 (Version None)
Quarter: 2006Q4

REPORT INFORMATION
  Report Type: 
  Country: None (occurrence: None)
  Receive Date: 20061115
  Receipt Date: 20061004
  Transmission Date: 20070319
  Serious: Yes (Life-Threatening, Hospitalization, Other)
  Sender: FDA-Public Use
  Company Number: 2006UW19272

PATIENT
  Age: 31 Year
  Sex: Female

DRUGS (1)
  1. SEROQUEL [Suspect]
     Indication: BRIEF PSYCHOTIC DISORDER, WITH POSTPARTUM ONSET
     Dosage: TAPERED TO MAX DOSE OF 1400MG
     Route: 048
     Dates: start: 20060413, end: 20060514

REACTIONS (2)
  - AGRANULOCYTOSIS [None]
  - CYTOMEGALOVIRUS INFECTION [None]
